FAERS Safety Report 8473109-3 (Version None)
Quarter: 2012Q2

REPORT INFORMATION
  Report Type: 
  Country: None (occurrence: None)
  Receive Date: 20120627
  Receipt Date: 20120612
  Transmission Date: 20120825
  Serious: Yes (Other)
  Sender: FDA-Public Use
  Company Number: FR-WATSON-2012-08211

PATIENT
  Age: 50 Year
  Sex: Male

DRUGS (4)
  1. TRELSTAR [Suspect]
     Indication: SEXUAL ABUSE
     Dosage: 11.25MG ONCE EVERY 3 MONTHS
     Route: 030
     Dates: start: 20120401
  2. AMITRIPTYLINE HYDROCHLORIDE [Concomitant]
     Indication: PRODUCT USED FOR UNKNOWN INDICATION
     Dosage: UNK
     Route: 065
  3. IMOVANE [Concomitant]
     Indication: PRODUCT USED FOR UNKNOWN INDICATION
     Dosage: UNK
     Route: 065
  4. VITAMIN D [Concomitant]
     Indication: PRODUCT USED FOR UNKNOWN INDICATION
     Dosage: UNK
     Route: 065

REACTIONS (5)
  - HAEMATURIA [None]
  - GYNAECOMASTIA [None]
  - VITAMIN D DEFICIENCY [None]
  - OSTEOPENIA [None]
  - HAEMANGIOMA OF LIVER [None]
